FAERS Safety Report 5610699-X (Version None)
Quarter: 2008Q1

REPORT INFORMATION
  Report Type: 
  Country: None (occurrence: None)
  Receive Date: 20080130
  Receipt Date: 20080130
  Transmission Date: 20080703
  Serious: Yes (Other)
  Sender: FDA-Public Use
  Company Number: None

PATIENT
  Sex: Female
  Weight: 68.0396 kg

DRUGS (1)
  1. SEPTOCAINE [Suspect]
     Indication: DENTAL TREATMENT
     Dosage: 1.8CC BILATERAL  DENTAL
     Route: 004

REACTIONS (3)
  - HYPOAESTHESIA [None]
  - PAIN [None]
  - SOFT TISSUE NECROSIS [None]
